FAERS Safety Report 24056882 (Version 5)
Quarter: 2024Q3

REPORT INFORMATION
  Report Type: Spontaneous
  Country: NL (occurrence: NL)
  Receive Date: 20240706
  Receipt Date: 20240911
  Transmission Date: 20241017
  Serious: Yes (Hospitalization, Other)
  Sender: CELLTRION
  Company Number: NL-CELLTRION INC.-2024NL015880

PATIENT

DRUGS (13)
  1. INFLIXIMAB [Suspect]
     Active Substance: INFLIXIMAB
     Indication: Crohn^s disease
     Dosage: EVERY 6 WEEKS
     Route: 065
     Dates: start: 201704
  2. INFLIXIMAB [Suspect]
     Active Substance: INFLIXIMAB
     Indication: Drug level decreased
  3. RISANKIZUMAB [Suspect]
     Active Substance: RISANKIZUMAB
     Indication: Crohn^s disease
     Dosage: UNK
     Route: 058
     Dates: start: 202308
  4. VEDOLIZUMAB [Suspect]
     Active Substance: VEDOLIZUMAB
     Indication: Crohn^s disease
     Dosage: LAST ADMIN DATE:2021
     Route: 065
     Dates: start: 20210313
  5. VEDOLIZUMAB [Suspect]
     Active Substance: VEDOLIZUMAB
     Dosage: Q4WEEKS (INTERVAL SHORTENING)
     Route: 065
     Dates: start: 202109
  6. HUMIRA [Suspect]
     Active Substance: ADALIMUMAB
     Indication: Crohn^s disease
     Dosage: 80 MG, Q4WEEKS
     Route: 058
     Dates: start: 202009
  7. PREDNISONE ACETATE [Concomitant]
     Active Substance: PREDNISONE ACETATE
     Indication: Crohn^s disease
     Dosage: 40 MG, LAST ADMIN DATE:2020
     Dates: start: 202007, end: 2020
  8. PREDNISONE ACETATE [Concomitant]
     Active Substance: PREDNISONE ACETATE
     Dosage: 60 MILLIGRAM, 1X/DAY
     Dates: start: 202010, end: 202012
  9. PREDNISONE ACETATE [Concomitant]
     Active Substance: PREDNISONE ACETATE
     Dosage: UNK
     Dates: start: 20210205, end: 20210205
  10. PREDNISONE ACETATE [Concomitant]
     Active Substance: PREDNISONE ACETATE
     Dosage: 60 MG, DAILY, DOSAGE INCREASED TO 60 MG/DAY
     Route: 042
     Dates: start: 202103, end: 202106
  11. PREDNISONE ACETATE [Concomitant]
     Active Substance: PREDNISONE ACETATE
     Dosage: UNK
     Route: 048
     Dates: start: 2023
  12. ENTOCORT [Concomitant]
     Active Substance: BUDESONIDE
     Indication: Crohn^s disease
     Dosage: START DUE TO STELARA^S INSUFFICIENCY
     Dates: start: 202006
  13. STELARA [Concomitant]
     Active Substance: USTEKINUMAB
     Indication: Crohn^s disease
     Dosage: UNK, EVERY 4 WEEKS (START DUE TO SECONDARY FAILURE TO ANTI-TNF)
     Dates: start: 201902, end: 20200907

REACTIONS (15)
  - Crohn^s disease [Unknown]
  - Unevaluable event [Unknown]
  - Faecal calprotectin increased [Unknown]
  - Unevaluable event [Unknown]
  - Colitis [Unknown]
  - Unevaluable event [Unknown]
  - Unevaluable event [Unknown]
  - Drug intolerance [Unknown]
  - Aeromonas infection [Unknown]
  - Campylobacter infection [Unknown]
  - Abdominal pain [Unknown]
  - Adverse drug reaction [Unknown]
  - Drug ineffective [Unknown]
  - Therapeutic product effect incomplete [Unknown]
  - Intentional product use issue [Unknown]

NARRATIVE: CASE EVENT DATE: 20170401
